FAERS Safety Report 7751367-8 (Version None)
Quarter: 2011Q3

REPORT INFORMATION
  Report Type: 
  Country: None (occurrence: None)
  Receive Date: 20110914
  Receipt Date: 20110831
  Transmission Date: 20111222
  Serious: Yes (Hospitalization)
  Sender: FDA-Public Use
  Company Number: US-BAYER-2011-081823

PATIENT
  Sex: Male

DRUGS (2)
  1. ALEVE (CAPLET) [Suspect]
     Indication: ARTHRALGIA
     Dosage: 440 MG
     Route: 048
     Dates: start: 20110601
  2. ALEVE (CAPLET) [Suspect]
     Dosage: 1100 MG
     Route: 048

REACTIONS (3)
  - RENAL DISORDER [None]
  - HAEMORRHAGE [None]
  - ARTHRALGIA [None]
